FAERS Safety Report 8010175-3 (Version None)
Quarter: 2011Q4

REPORT INFORMATION
  Report Type: 
  Country: None (occurrence: None)
  Receive Date: 20111228
  Receipt Date: 20111216
  Transmission Date: 20120403
  Serious: Yes (Death)
  Sender: FDA-Public Use
  Company Number: US-PFIZER INC-2011308772

PATIENT
  Age: 19 Year
  Sex: Female

DRUGS (8)
  1. AMLODIPINE BESYLATE [Suspect]
     Route: 048
  2. DIPHENHYDRAMINE HCL [Suspect]
  3. ACETAMINOPHEN AND HYDROCODONE BITARTRATE [Suspect]
  4. HYDROXYZINE [Suspect]
     Route: 048
  5. ACETYLSALICYLIC ACID SRT [Suspect]
  6. TRIAMTERENE AND HYDROCHLOROTHIAZIDE [Suspect]
  7. DIAZEPAM [Suspect]
     Route: 048
  8. ATENOLOL [Suspect]
     Route: 048

REACTIONS (3)
  - RESPIRATORY ARREST [None]
  - COMPLETED SUICIDE [None]
  - CARDIAC ARREST [None]
